FAERS Safety Report 15019370 (Version 1)
Quarter: 2018Q2

REPORT INFORMATION
  Report Type: Spontaneous
  Country: US (occurrence: US)
  Receive Date: 20180617
  Receipt Date: 20180617
  Transmission Date: 20180711
  Serious: Yes (Hospitalization)
  Sender: FDA-Public Use
  Company Number: PHEH2018US023517

PATIENT
  Age: 87 Year
  Sex: Male
  Weight: 198 kg

DRUGS (1)
  1. VOTRIENT [Suspect]
     Active Substance: PAZOPANIB HYDROCHLORIDE
     Indication: RENAL CANCER
     Dosage: 800 MG, QD
     Route: 048
     Dates: start: 20180524

REACTIONS (7)
  - Dysarthria [Unknown]
  - Confusional state [Unknown]
  - Infection [Unknown]
  - Agitation [Unknown]
  - Cerebrovascular accident [Unknown]
  - Amnesia [Unknown]
  - Dysphagia [Unknown]

NARRATIVE: CASE EVENT DATE: 20180607
